FAERS Safety Report 4633993-8 (Version None)
Quarter: 2005Q2

REPORT INFORMATION
  Report Type: 
  Country: None (occurrence: None)
  Receive Date: 20050412
  Receipt Date: 20050412
  Transmission Date: 20051028
  Serious: Yes (Life-Threatening, Other)
  Sender: FDA-Public Use
  Company Number: None

PATIENT
  Age: 50 Year
  Sex: Female

DRUGS (7)
  1. ZOSYN [Suspect]
     Indication: IMPAIRED HEALING
     Dosage: 3.375GM  EVERY 6 HOURS  INTRAVENOU
     Route: 042
     Dates: start: 20040421, end: 20040422
  2. ZOSYN [Suspect]
     Indication: URINARY TRACT INFECTION
     Dosage: 3.375GM  EVERY 6 HOURS  INTRAVENOU
     Route: 042
     Dates: start: 20040421, end: 20040422
  3. URISED [Concomitant]
  4. MULTIPLE VITAMIN [Concomitant]
  5. ASCORBIC ACID [Concomitant]
  6. ENOXAPARIN SODIUM [Concomitant]
  7. VANCOMYCIN [Concomitant]

REACTIONS (4)
  - ERYTHEMA [None]
  - HYPERHIDROSIS [None]
  - HYPOTENSION [None]
  - PRURITUS [None]
